FAERS Safety Report 9639811 (Version 1)
Quarter: 2013Q4

REPORT INFORMATION
  Report Type: Spontaneous
  Country: US (occurrence: US)
  Receive Date: 20131023
  Receipt Date: 20131023
  Transmission Date: 20140711
  Serious: Yes (Other)
  Sender: FDA-Public Use
  Company Number: US-JNJCP-30000183766

PATIENT
  Sex: Female

DRUGS (21)
  1. REMBRANDT 2-HOUR WHITE KIT [Suspect]
     Indication: PRODUCT USED FOR UNKNOWN INDICATION
     Route: 004
  2. NO DRUG NAME [Concomitant]
  3. NO DRUG NAME [Concomitant]
  4. NO DRUG NAME [Concomitant]
  5. NO DRUG NAME [Concomitant]
  6. NO DRUG NAME [Concomitant]
  7. NO DRUG NAME [Concomitant]
  8. NO DRUG NAME [Concomitant]
  9. NO DRUG NAME [Concomitant]
  10. NO DRUG NAME [Concomitant]
  11. NO DRUG NAME [Concomitant]
  12. NO DRUG NAME [Concomitant]
  13. UNSPECIFIED [Suspect]
     Indication: PRODUCT USED FOR UNKNOWN INDICATION
     Route: 004
  14. UNSPECIFIED [Suspect]
     Indication: PRODUCT USED FOR UNKNOWN INDICATION
     Route: 049
  15. NO DRUG NAME [Concomitant]
  16. NO DRUG NAME [Concomitant]
  17. NO DRUG NAME [Concomitant]
  18. NO DRUG NAME [Concomitant]
  19. NO DRUG NAME [Concomitant]
  20. NO DRUG NAME [Concomitant]
  21. NO DRUG NAME [Concomitant]

REACTIONS (3)
  - Pharyngeal oedema [Recovered/Resolved]
  - Dyspnoea [Recovered/Resolved]
  - Chemical burn of gastrointestinal tract [Not Recovered/Not Resolved]
